FAERS Safety Report 12724358 (Version 1)
Quarter: 2016Q3

REPORT INFORMATION
  Report Type: Spontaneous
  Country: US (occurrence: US)
  Receive Date: 20160906
  Receipt Date: 20160906
  Transmission Date: 20161109
  Serious: No
  Sender: FDA-Public Use
  Company Number: None

PATIENT
  Age: 25 Year
  Sex: Female
  Weight: 51.3 kg

DRUGS (1)
  1. SUBOXONE [Suspect]
     Active Substance: BUPRENORPHINE HYDROCHLORIDE\NALOXONE HYDROCHLORIDE
     Indication: DRUG DEPENDENCE
     Dosage: OTHER STRENGTH:;OTHER DOSE:STRIP;OTHER FREQUENCY:;OTHER ROUTE:
     Route: 060
     Dates: start: 20160830

REACTIONS (4)
  - Salivary hypersecretion [None]
  - Incorrect route of drug administration [None]
  - Administration site ulcer [None]
  - Administration site pain [None]

NARRATIVE: CASE EVENT DATE: 20160831
